FAERS Safety Report 7726497-7 (Version None)
Quarter: 2011Q3

REPORT INFORMATION
  Report Type: 
  Country: None (occurrence: None)
  Receive Date: 20110902
  Receipt Date: 20110820
  Transmission Date: 20111222
  Serious: Yes (Other)
  Sender: FDA-Public Use
  Company Number: PHHY2011CH75340

PATIENT
  Age: 34 Year
  Sex: Male

DRUGS (2)
  1. CYCLOSPORINE [Suspect]
     Indication: LIVER TRANSPLANT
  2. ALLOPURINOL [Concomitant]
     Dosage: 100 MG

REACTIONS (2)
  - RENAL FAILURE [None]
  - GOUT [None]
